FAERS Safety Report 10443594 (Version 5)
Quarter: 2015Q2

REPORT INFORMATION
  Report Type: Report from Study
  Country: AU (occurrence: AU)
  Receive Date: 20140910
  Receipt Date: 20150402
  Transmission Date: 20150821
  Serious: Yes (Other)
  Sender: FDA-Public Use
  Company Number: AU-ROCHE-1459403

PATIENT
  Age: 51 Year
  Sex: Female
  Weight: 70.8 kg

DRUGS (12)
  1. NICOTINE TRANSDERMAL SYSTEM [Concomitant]
     Active Substance: NICOTINE
     Indication: EX-TOBACCO USER
     Route: 065
     Dates: start: 20140718
  2. CLARATYNE [Concomitant]
     Active Substance: LORATADINE
     Indication: RHINITIS
     Route: 065
     Dates: start: 20131014, end: 20131014
  3. BACTROBAN [Concomitant]
     Active Substance: MUPIROCIN\MUPIROCIN CALCIUM
     Indication: INFECTION
     Dosage: 1 APPLICATION DAILY
     Route: 065
     Dates: start: 20140606
  4. KEFLEX [Concomitant]
     Active Substance: CEPHALEXIN
     Indication: ABSCESS
     Route: 065
     Dates: start: 20130606
  5. ASPIRIN. [Concomitant]
     Active Substance: ASPIRIN
     Indication: NAUSEA
     Route: 065
     Dates: start: 20140808, end: 20140829
  6. RIKODEINE [Concomitant]
     Active Substance: DIHYDROCODEINE BITARTRATE
     Indication: COUGH
     Route: 065
     Dates: start: 20130926, end: 20131002
  7. PANADOL [Concomitant]
     Active Substance: ACETAMINOPHEN
     Indication: MYALGIA
     Route: 065
     Dates: start: 20131022, end: 20131022
  8. REMIFEMIN [Concomitant]
     Route: 065
     Dates: start: 20131106
  9. VISMODEGIB [Suspect]
     Active Substance: VISMODEGIB
     Indication: BASAL CELL CARCINOMA
     Dosage: DATE FO LAST DOSE PRIOR TO SAE: 28/AUG/2014
     Route: 048
     Dates: start: 20130802
  10. NYAL COLD + FLU FIGHTER [Concomitant]
     Indication: INFLUENZA
     Route: 065
     Dates: start: 20130912, end: 20130924
  11. CLINDAMYCIN [Concomitant]
     Active Substance: CLINDAMYCIN\CLINDAMYCIN PHOSPHATE
     Indication: ABSCESS
     Route: 065
     Dates: start: 20130606
  12. DIMETAPP (AUSTRALIA) [Concomitant]
     Indication: INFLUENZA
     Route: 065
     Dates: start: 201405, end: 20140606

REACTIONS (1)
  - Squamous cell carcinoma of skin [Recovered/Resolved]

NARRATIVE: CASE EVENT DATE: 20140801
